FAERS Safety Report 17191340 (Version 1)
Quarter: 2019Q4

REPORT INFORMATION
  Report Type: Spontaneous
  Country: US (occurrence: US)
  Receive Date: 20191221
  Receipt Date: 20191221
  Transmission Date: 20200122
  Serious: Yes (Hospitalization)
  Sender: FDA-Public Use
  Company Number: None

PATIENT
  Age: 80 Year
  Sex: Male
  Weight: 66.68 kg

DRUGS (13)
  1. VITAMIN D [Concomitant]
     Active Substance: VITAMIN D NOS
  2. TORSEMIDE. [Concomitant]
     Active Substance: TORSEMIDE
  3. OSCAL [Concomitant]
     Active Substance: CALCIUM CARBONATE
  4. HYDROCORTISONE. [Concomitant]
     Active Substance: HYDROCORTISONE
  5. ACYCLOVIR. [Concomitant]
     Active Substance: ACYCLOVIR
  6. SODIUM CHLORIDE. [Concomitant]
     Active Substance: SODIUM CHLORIDE
  7. RENAL VITAMIN [Concomitant]
  8. WARFARIN [Concomitant]
     Active Substance: WARFARIN
  9. LUPRON DEPOT [Concomitant]
     Active Substance: LEUPROLIDE ACETATE
  10. CALCITROL [Concomitant]
  11. MIDODRINE [Concomitant]
     Active Substance: MIDODRINE
  12. ABIRATERONE ACETATE. [Suspect]
     Active Substance: ABIRATERONE ACETATE
     Indication: PROSTATE CANCER
     Route: 048
     Dates: start: 20190301, end: 20191030
  13. LUMIGAN [Concomitant]
     Active Substance: BIMATOPROST

REACTIONS (2)
  - Syncope [None]
  - Fall [None]

NARRATIVE: CASE EVENT DATE: 20191030
